FAERS Safety Report 5404034-X (Version None)
Quarter: 2007Q3

REPORT INFORMATION
  Report Type: 
  Country: None (occurrence: None)
  Receive Date: 20070802
  Receipt Date: 20070730
  Transmission Date: 20080115
  Serious: Yes (Other)
  Sender: FDA-Public Use
  Company Number: PT-AVENTIS-200715706GDDC

PATIENT
  Age: 55 Year
  Sex: Female
  Weight: 70.4 kg

DRUGS (6)
  1. GLYBURIDE [Suspect]
     Indication: DIABETES MELLITUS
     Dates: start: 20070508
  2. METFORMIN HYDROCHLORIDE [Concomitant]
     Indication: DIABETES MELLITUS
     Route: 048
  3. ACARBOSE [Concomitant]
     Indication: DIABETES MELLITUS
     Route: 048
  4. ROSIGLITAZONE MALEATE [Concomitant]
     Indication: DIABETES MELLITUS
     Route: 048
  5. VALPROATE SODIUM [Concomitant]
     Indication: EPILEPSY
     Route: 048
  6. ALPRAZOLAM [Concomitant]
     Indication: EPILEPSY
     Route: 048

REACTIONS (4)
  - DIZZINESS [None]
  - HOT FLUSH [None]
  - SOMNOLENCE [None]
  - TREMOR [None]
